FAERS Safety Report 12253573 (Version 1)
Quarter: 2016Q2

REPORT INFORMATION
  Report Type: Spontaneous
  Country: FR (occurrence: FR)
  Receive Date: 20160411
  Receipt Date: 20160411
  Transmission Date: 20160815
  Serious: Yes (Other)
  Sender: FDA-Public Use
  Company Number: FR-TEVA-649375ISR

PATIENT
  Age: 76 Year
  Sex: Male

DRUGS (6)
  1. ETOPOSIDE TEVA [Suspect]
     Active Substance: ETOPOSIDE
     Indication: MAST CELL ACTIVATION SYNDROME
     Dosage: 368 MILLIGRAM DAILY;
     Route: 042
     Dates: start: 20160202, end: 20160202
  2. CIFLOX [Concomitant]
     Active Substance: CIPROFLOXACIN
  3. IMOVANE [Concomitant]
     Active Substance: ZOPICLONE
  4. METHYLPREDNISOLONE. [Concomitant]
     Active Substance: METHYLPREDNISOLONE
  5. DOLIPRANE [Concomitant]
     Active Substance: ACETAMINOPHEN
  6. AUGMENTIN [Concomitant]
     Active Substance: AMOXICILLIN\CLAVULANATE POTASSIUM

REACTIONS (2)
  - Pancytopenia [Recovering/Resolving]
  - Condition aggravated [Recovered/Resolved]

NARRATIVE: CASE EVENT DATE: 20160211
